FAERS Safety Report 7075685-4 (Version None)
Quarter: 2010Q4

REPORT INFORMATION
  Report Type: 
  Country: None (occurrence: None)
  Receive Date: 20101031
  Receipt Date: 20101019
  Transmission Date: 20110411
  Serious: Yes (Death, Hospitalization)
  Sender: FDA-Public Use
  Company Number: JP-BRISTOL-MYERS SQUIBB COMPANY-15288624

PATIENT
  Age: 53 Year
  Sex: Male
  Weight: 86 kg

DRUGS (2)
  1. ERBITUX [Suspect]
     Indication: COLON CANCER
     Dosage: 24DEC2009 500MG;10JUN10=21 INF;24JUN10=22 INF(MOST RECENT);12AUG10=25INF(LAST INF)
     Route: 042
     Dates: start: 20091203, end: 20100812
  2. IRINOTECAN HCL [Concomitant]
     Indication: COLON CANCER
     Dosage: IV INFUSION;10JUN10=10 INF;
     Route: 042
     Dates: start: 20091203, end: 20100610

REACTIONS (2)
  - ASCITES [None]
  - MALIGNANT NEOPLASM PROGRESSION [None]
